FAERS Safety Report 8607148 (Version 3)
Quarter: 2014Q1

REPORT INFORMATION
  Report Type: Spontaneous
  Country: US (occurrence: US)
  Receive Date: 20120611
  Receipt Date: 20140115
  Transmission Date: 20141002
  Serious: Yes (Hospitalization, Disabling, Other)
  Sender: FDA-Public Use
  Company Number: US-ASTRAZENECA-2012SE36258

PATIENT
  Age: 63 Year
  Sex: Female
  Weight: 111.1 kg

DRUGS (14)
  1. NEXIUM [Suspect]
     Indication: GASTROOESOPHAGEAL REFLUX DISEASE
     Route: 048
     Dates: start: 2001, end: 2011
  2. NEXIUM [Suspect]
     Indication: GASTROOESOPHAGEAL REFLUX DISEASE
     Route: 048
     Dates: start: 200107
  3. NEXIUM [Suspect]
     Indication: GASTROOESOPHAGEAL REFLUX DISEASE
     Route: 048
     Dates: start: 2008
  4. ACIPHEX [Concomitant]
  5. TUMS [Concomitant]
  6. ESTROGEN [Concomitant]
  7. ALLEGRA [Concomitant]
     Route: 048
  8. METOPROLOL [Concomitant]
     Route: 048
  9. LYRICA [Concomitant]
     Route: 048
  10. PRAVASTATIN [Concomitant]
     Route: 048
  11. SINGULAIR [Concomitant]
     Route: 048
  12. TIZANIDINE [Concomitant]
     Route: 048
  13. CEPHADYN [Concomitant]
     Dosage: 650 MG -50 MG 1 TAB ORALLY PRN
     Route: 048
  14. PROMETHAZINE [Concomitant]
     Dosage: 25 MG 1 TAB ORALLY PRN
     Route: 048

REACTIONS (19)
  - Radius fracture [Unknown]
  - Convulsion [Unknown]
  - Upper limb fracture [Unknown]
  - Back pain [Unknown]
  - Irritable bowel syndrome [Unknown]
  - Ulna fracture [Unknown]
  - Anxiety [Unknown]
  - Depression [Unknown]
  - Diarrhoea [Unknown]
  - Osteoporosis [Unknown]
  - Wrist fracture [Unknown]
  - Ankle fracture [Unknown]
  - Arthritis [Unknown]
  - Cataract [Unknown]
  - Sarcoidosis [Unknown]
  - Vitamin D deficiency [Unknown]
  - Osteoarthritis [Unknown]
  - Bone pain [Unknown]
  - Myalgia [Unknown]
